FAERS Safety Report 7534530-0 (Version None)
Quarter: 2011Q2

REPORT INFORMATION
  Report Type: 
  Country: None (occurrence: None)
  Receive Date: 20110609
  Receipt Date: 20091109
  Transmission Date: 20111010
  Serious: Yes (Hospitalization)
  Sender: FDA-Public Use
  Company Number: PHHY2009FR45950

PATIENT
  Sex: Male

DRUGS (11)
  1. IMATINIB MESYLATE [Suspect]
     Indication: CHRONIC MYELOID LEUKAEMIA
     Dosage: 400 MG, ONCE/SINGLE
     Dates: start: 20050527
  2. BISOPROLOL FUMARATE [Concomitant]
     Dosage: 205 MG, ONCE/SINGLE
  3. ATORVASTATIN [Concomitant]
     Dosage: 10 MG, ONCE/SINGLE
  4. PLAVIX [Concomitant]
     Dosage: 75 MG, QD
  5. POTASSIUM CHLORIDE [Concomitant]
     Dosage: 1 DF, QD
  6. ESOMEPRAZOLE MAGNESIUM [Concomitant]
     Dosage: 40 MG, QD
  7. ALLOPURINOL [Concomitant]
     Dosage: 200 MG, ONCE/SINGLE
  8. OROCAL D3 [Concomitant]
     Dosage: 2 DF, ONCE/SINGLE
  9. COZAAR [Concomitant]
     Dosage: 50 MG, QD
  10. ERYTHROPOIETIN HUMAN [Concomitant]
     Dosage: UNK
     Dates: end: 20090707
  11. CORDARONE [Concomitant]
     Dosage: 1 DF, ONCE/SINGLE

REACTIONS (7)
  - SEPSIS [None]
  - HYPOCALCAEMIA [None]
  - FALL [None]
  - NORMOCHROMIC NORMOCYTIC ANAEMIA [None]
  - MALAISE [None]
  - FRACTURE [None]
  - ASTHENIA [None]
